FAERS Safety Report 9322048 (Version 1)
Quarter: 2013Q2

REPORT INFORMATION
  Report Type: Other
  Country: JP (occurrence: JP)
  Receive Date: 20130531
  Receipt Date: 20130531
  Transmission Date: 20140414
  Serious: Yes (Hospitalization)
  Sender: FDA-Public Use
  Company Number: JP-BRISTOL-MYERS SQUIBB COMPANY-18941468

PATIENT
  Age: 52 Year
  Sex: Male

DRUGS (2)
  1. DASATINIB [Suspect]
     Indication: CHRONIC MYELOID LEUKAEMIA
     Dates: start: 2009
  2. NILOTINIB [Concomitant]
     Indication: CHRONIC MYELOID LEUKAEMIA
     Dates: start: 2009

REACTIONS (1)
  - Organising pneumonia [Recovering/Resolving]
